FAERS Safety Report 4781082-4 (Version None)
Quarter: 2005Q3

REPORT INFORMATION
  Report Type: 
  Country: None (occurrence: None)
  Receive Date: 20050928
  Receipt Date: 20050915
  Transmission Date: 20060218
  Serious: Yes (Hospitalization)
  Sender: FDA-Public Use
  Company Number: JO-JNJFOC-20050905836

PATIENT
  Age: 36 Year
  Sex: Female
  Weight: 100 kg

DRUGS (6)
  1. REMICADE [Suspect]
     Route: 042
  2. REMICADE [Suspect]
     Dosage: 4MG/KG
     Route: 042
  3. REMICADE [Suspect]
     Indication: RHEUMATOID ARTHRITIS
     Dosage: 3MG/KG
     Route: 042
  4. METHOTREXATE [Concomitant]
     Route: 048
  5. PREDNISOLONE [Concomitant]
     Route: 048
  6. HYDROCHLOROQUINE [Concomitant]
     Route: 048

REACTIONS (3)
  - ARTHRITIS BACTERIAL [None]
  - SYNOVIAL CYST [None]
  - THROMBOPHLEBITIS SUPERFICIAL [None]
